FAERS Safety Report 16025955 (Version 1)
Quarter: 2019Q1

REPORT INFORMATION
  Report Type: Spontaneous
  Country: IT (occurrence: IT)
  Receive Date: 20190302
  Receipt Date: 20190302
  Transmission Date: 20190418
  Serious: Yes (Other)
  Sender: FDA-Public Use
  Company Number: IT-AUROBINDO-AUR-APL-2019-009482

PATIENT

DRUGS (5)
  1. VEPESID [Suspect]
     Active Substance: ETOPOSIDE
     Indication: NEUROFIBROSARCOMA
     Dosage: 165 MILLIGRAM, CYCLICAL
     Route: 042
     Dates: start: 20171009
  2. CARBOPLATIN. [Suspect]
     Active Substance: CARBOPLATIN
     Indication: NEUROFIBROSARCOMA
     Dosage: 220 MILLIGRAM, CYCLICAL
     Route: 042
     Dates: start: 20171009
  3. TRIMETON [Concomitant]
     Active Substance: CHLORPHENIRAMINE MALEATE
     Indication: PROPHYLAXIS
     Dosage: 10 MILLIGRAM, ONCE A DAY
     Route: 042
     Dates: start: 20171009, end: 20171011
  4. ZOFRAN [Concomitant]
     Active Substance: ONDANSETRON HYDROCHLORIDE
     Indication: PROPHYLAXIS
     Dosage: 4.5 MILLIGRAM, ONCE A DAY
     Route: 042
     Dates: start: 20171009, end: 20171011
  5. GABAPENTIN. [Concomitant]
     Active Substance: GABAPENTIN
     Indication: NEUROPATHY PERIPHERAL
     Dosage: 300 MILLIGRAM, ONCE A DAY
     Route: 048
     Dates: start: 20170713

REACTIONS (1)
  - Herpes zoster [Recovered/Resolved]

NARRATIVE: CASE EVENT DATE: 20171014
